FAERS Safety Report 13056734 (Version 21)
Quarter: 2020Q3

REPORT INFORMATION
  Report Type: Spontaneous
  Country: US (occurrence: US)
  Receive Date: 20161222
  Receipt Date: 20200908
  Transmission Date: 20201102
  Serious: Yes (Hospitalization, Other)
  Sender: FDA-Public Use
  Company Number: US-BIOMARINAP-US-2016-109231

PATIENT
  Age: 40 Year
  Sex: Female

DRUGS (5)
  1. ALDURAZYME [Suspect]
     Active Substance: LARONIDASE
     Dosage: UNK
     Route: 042
     Dates: start: 20190129, end: 20191028
  2. DIPHENHYDRAMINE. [Suspect]
     Active Substance: DIPHENHYDRAMINE
     Indication: PRODUCT USED FOR UNKNOWN INDICATION
     Route: 065
  3. ALDURAZYME [Suspect]
     Active Substance: LARONIDASE
     Dosage: 23.20 MILLIGRAM
     Route: 042
     Dates: start: 20200528
  4. ALDURAZYME [Suspect]
     Active Substance: LARONIDASE
     Indication: MUCOPOLYSACCHARIDOSIS I
     Dosage: 23.30 MILLIGRAM
     Route: 042
     Dates: start: 20150903, end: 20190129
  5. ALDURAZYME [Suspect]
     Active Substance: LARONIDASE
     Dosage: UNK, QW
     Route: 042
     Dates: start: 20191028, end: 20200528

REACTIONS (32)
  - Vaginal haemorrhage [Recovering/Resolving]
  - Urinary incontinence [Unknown]
  - Micturition urgency [Unknown]
  - Procedural pain [Recovering/Resolving]
  - Abdominal discomfort [Unknown]
  - Neck surgery [Not Recovered/Not Resolved]
  - Retinal oedema [Not Recovered/Not Resolved]
  - Thrombosis [Recovering/Resolving]
  - Carpal tunnel syndrome [Not Recovered/Not Resolved]
  - Pain in extremity [Not Recovered/Not Resolved]
  - Papilloedema [Not Recovered/Not Resolved]
  - Hernia [Recovering/Resolving]
  - Cubital tunnel syndrome [Not Recovered/Not Resolved]
  - Vitamin D decreased [Recovering/Resolving]
  - Post procedural complication [Recovering/Resolving]
  - Somnolence [Unknown]
  - Energy increased [Unknown]
  - Vision blurred [Unknown]
  - Pain [Not Recovered/Not Resolved]
  - Visual impairment [Recovering/Resolving]
  - Alopecia [Unknown]
  - Intercepted product storage error [Unknown]
  - Asthenia [Not Recovered/Not Resolved]
  - Chest discomfort [Recovered/Resolved]
  - Optic nerve injury [Not Recovered/Not Resolved]
  - Cardiac assistance device user [Unknown]
  - Musculoskeletal stiffness [Not Recovered/Not Resolved]
  - Haemoglobin decreased [Recovering/Resolving]
  - Dizziness [Recovering/Resolving]
  - Heart rate increased [Unknown]
  - Feeling abnormal [Recovering/Resolving]
  - Arthralgia [Not Recovered/Not Resolved]

NARRATIVE: CASE EVENT DATE: 201804
